FAERS Safety Report 6986235-2 (Version None)
Quarter: 2010Q3

REPORT INFORMATION
  Report Type: 
  Country: None (occurrence: None)
  Receive Date: 20100915
  Receipt Date: 20090616
  Transmission Date: 20110219
  Serious: No
  Sender: FDA-Public Use
  Company Number: US-WYE-H09777509

PATIENT
  Sex: Female
  Weight: 85.81 kg

DRUGS (4)
  1. PRISTIQ [Suspect]
     Indication: DEPRESSION
     Route: 048
     Dates: start: 20090501
  2. SINEMET [Concomitant]
  3. DYAZIDE [Concomitant]
  4. ALTACE [Concomitant]

REACTIONS (6)
  - BRUXISM [None]
  - FEELING ABNORMAL [None]
  - GLOSSODYNIA [None]
  - HEADACHE [None]
  - PARAESTHESIA ORAL [None]
  - THROAT IRRITATION [None]
